FAERS Safety Report 11279859 (Version 1)
Quarter: 2015Q3

REPORT INFORMATION
  Report Type: Spontaneous
  Country: US (occurrence: US)
  Receive Date: 20150717
  Receipt Date: 20150717
  Transmission Date: 20151125
  Serious: No
  Sender: FDA-Public Use
  Company Number: ALCN2015US004027

PATIENT
  Sex: Male

DRUGS (4)
  1. DUREZOL [Suspect]
     Active Substance: DIFLUPREDNATE
     Indication: PRODUCT USED FOR UNKNOWN INDICATION
     Dosage: 1 GTT, QID
     Route: 047
     Dates: start: 20150603
  2. BESIVANCE//BESIFLOXACIN [Concomitant]
     Indication: PRODUCT USED FOR UNKNOWN INDICATION
     Dosage: 1 GTT, QD
     Route: 047
  3. DUREZOL [Suspect]
     Active Substance: DIFLUPREDNATE
     Dosage: 1 GTT, BID
     Route: 047
     Dates: start: 20150617
  4. PROLENSA [Concomitant]
     Active Substance: BROMFENAC SODIUM
     Indication: PRODUCT USED FOR UNKNOWN INDICATION
     Dosage: 1 GTT, QD
     Route: 047

REACTIONS (2)
  - Skin discolouration [Unknown]
  - Diplopia [Recovered/Resolved]

NARRATIVE: CASE EVENT DATE: 20150620
